FAERS Safety Report 11644487 (Version 1)
Quarter: 2015Q4

REPORT INFORMATION
  Report Type: Spontaneous
  Country: US (occurrence: US)
  Receive Date: 20151020
  Receipt Date: 20151020
  Transmission Date: 20160304
  Serious: No
  Sender: FDA-Public Use
  Company Number: US-GLAXOSMITHKLINE-US2015147609

PATIENT
  Age: 72 Year
  Sex: Male

DRUGS (2)
  1. NICORETTE FRESH MINT [Suspect]
     Active Substance: NICOTINE
     Indication: SMOKING CESSATION THERAPY
     Dosage: 2 MG, UNK
  2. NICORETTE MINT [Suspect]
     Active Substance: NICOTINE
     Indication: SMOKING CESSATION THERAPY
     Dosage: 2 MG, 4-5 PIECES,UNK

REACTIONS (2)
  - Glossitis [Recovered/Resolved]
  - Nicotine dependence [Not Recovered/Not Resolved]
